FAERS Safety Report 19705658 (Version 2)
Quarter: 2021Q4

REPORT INFORMATION
  Report Type: Report from Study
  Country: US (occurrence: US)
  Receive Date: 20210817
  Receipt Date: 20211020
  Transmission Date: 20220303
  Serious: No
  Sender: FDA-Public Use
  Company Number: US-ACADIA PHARMACEUTICALS INC.-ACA-2021-PIM-002724

PATIENT
  Age: 68 Year
  Sex: Male

DRUGS (13)
  1. NUPLAZID [Suspect]
     Active Substance: PIMAVANSERIN TARTRATE
     Indication: Parkinson^s disease psychosis
     Dosage: 10 MILLIGRAM, QD
     Route: 048
     Dates: start: 20210720, end: 2021
  2. NUPLAZID [Suspect]
     Active Substance: PIMAVANSERIN TARTRATE
     Indication: Hallucination
  3. NUPLAZID [Suspect]
     Active Substance: PIMAVANSERIN TARTRATE
     Indication: Delusion
  4. AMANTADINE. [Concomitant]
     Active Substance: AMANTADINE HYDROCHLORIDE
  5. CARBIDOPA\LEVODOPA [Concomitant]
     Active Substance: CARBIDOPA\LEVODOPA
  6. DONEPEZIL [Concomitant]
     Active Substance: DONEPEZIL
  7. DOXYCYCLINE [Concomitant]
     Active Substance: DOXYCYCLINE
  8. KETOCONAZOLE [Concomitant]
     Active Substance: KETOCONAZOLE
  9. LINZESS [Concomitant]
     Active Substance: LINACLOTIDE
  10. MUPIROCIN [Concomitant]
     Active Substance: MUPIROCIN
  11. MYRBETRIQ [Concomitant]
     Active Substance: MIRABEGRON
  12. ROSUVASTATIN [Concomitant]
     Active Substance: ROSUVASTATIN
  13. TAMSULOSIN [Concomitant]
     Active Substance: TAMSULOSIN

REACTIONS (4)
  - Underdose [Unknown]
  - Hallucination [Unknown]
  - Drug ineffective [Unknown]
  - Agitation [Not Recovered/Not Resolved]

NARRATIVE: CASE EVENT DATE: 20210701
